FAERS Safety Report 8426858-7 (Version None)
Quarter: 2012Q2

REPORT INFORMATION
  Report Type: 
  Country: None (occurrence: None)
  Receive Date: 20120611
  Receipt Date: 20120528
  Transmission Date: 20120825
  Serious: Yes (Other)
  Sender: FDA-Public Use
  Company Number: US-ROCHE-1020845

PATIENT

DRUGS (5)
  1. AZACITIDINE [Suspect]
     Route: 065
  2. CYCLOPHOSPHAMIDE [Suspect]
     Indication: LYMPHOMA
     Dosage: FOR 6 TO 9 DAYS
     Route: 065
  3. VINCRISTINE [Suspect]
     Indication: LYMPHOMA
     Dosage: FOR 8 DAYS
     Route: 065
  4. MABTHERA [Suspect]
     Indication: LYMPHOMA
     Dosage: FOR 8 DAYS
     Route: 042
  5. AZACITIDINE [Suspect]
     Indication: LYMPHOMA
     Route: 065

REACTIONS (8)
  - ANAEMIA [None]
  - HYPOALBUMINAEMIA [None]
  - NAUSEA [None]
  - DECREASED APPETITE [None]
  - ABSCESS [None]
  - THROMBOCYTOPENIA [None]
  - BACTERAEMIA [None]
  - NEUTROPENIA [None]
